FAERS Safety Report 8818810 (Version 1)
Quarter: 2012Q4

REPORT INFORMATION
  Report Type: Spontaneous
  Country: US (occurrence: None)
  Receive Date: 20121004
  Receipt Date: 20121004
  Transmission Date: 20130627
  Serious: No
  Sender: FDA-Public Use
  Company Number: None

PATIENT
  Age: 77 Year
  Sex: Female
  Weight: 56.7 kg

DRUGS (1)
  1. LEVAQUIN [Suspect]
     Indication: BLADDER INFECTION
     Dates: start: 20120823

REACTIONS (3)
  - Arthralgia [None]
  - Joint effusion [None]
  - Inadequate analgesia [None]
